FAERS Safety Report 16208236 (Version 1)
Quarter: 2019Q2

REPORT INFORMATION
  Report Type: Spontaneous
  Country: DE (occurrence: DE)
  Receive Date: 20190417
  Receipt Date: 20190417
  Transmission Date: 20190711
  Serious: Yes (Other)
  Sender: FDA-Public Use
  Company Number: DE-PFIZER INC-2019158839

PATIENT
  Sex: Female

DRUGS (7)
  1. EPLERENONE. [Suspect]
     Active Substance: EPLERENONE
     Indication: CARDIAC FAILURE
  2. VALSARTAN. [Suspect]
     Active Substance: VALSARTAN
     Dosage: UNK
  3. DOXAZOSIN [Concomitant]
     Active Substance: DOXAZOSIN\DOXAZOSIN MESYLATE
     Dosage: UNK
  4. DIOVAN [Suspect]
     Active Substance: VALSARTAN
     Dosage: 2 DF, BID
     Route: 065
     Dates: start: 201810
  5. METOHEXAL SUCC [Concomitant]
     Active Substance: METOPROLOL SUCCINATE
  6. TORASEMIDE [Concomitant]
     Active Substance: TORSEMIDE
  7. DIOVAN [Suspect]
     Active Substance: VALSARTAN
     Dosage: UNK

REACTIONS (2)
  - Peripheral swelling [Unknown]
  - Myocardial infarction [Unknown]

NARRATIVE: CASE EVENT DATE: 2017
